FAERS Safety Report 17899037 (Version 1)
Quarter: 2020Q2

REPORT INFORMATION
  Report Type: Spontaneous
  Country: DE (occurrence: DE)
  Receive Date: 20200615
  Receipt Date: 20200615
  Transmission Date: 20200714
  Serious: Yes (Hospitalization)
  Sender: FDA-Public Use
  Company Number: DE-TEVA-2020-DE-1247538

PATIENT
  Age: 67 Year
  Sex: Male

DRUGS (8)
  1. PREDNISOLON [Concomitant]
     Active Substance: PREDNISOLONE
     Dosage: 10 MILLIGRAM DAILY; 1-0-1-0
  2. OXYCODONE HYDROCHLORIDE. [Suspect]
     Active Substance: OXYCODONE HYDROCHLORIDE
     Dosage: 40 MILLIGRAM DAILY; 1-1-1-1
  3. DOCETAXEL. [Suspect]
     Active Substance: DOCETAXEL
     Dosage: NK MG, LAST 07112019
     Dates: end: 20191107
  4. METAMIZOL [Concomitant]
     Active Substance: METAMIZOLE SODIUM
     Dosage: 120 GTT DAILY;  500 MG 30-30-30-30, DROPS
  5. ETORICOXIB. [Concomitant]
     Active Substance: ETORICOXIB
     Dosage: 90 MILLIGRAM DAILY; 1-0-0-0
  6. FELODIPIN [Concomitant]
     Active Substance: FELODIPINE
     Dosage: 5 MILLIGRAM DAILY; 5 MG, 1-0-0-0,
  7. OMEPRAZOL [Concomitant]
     Active Substance: OMEPRAZOLE
     Dosage: 20 MILLIGRAM DAILY; 1-0-0-0.
  8. ENOXAPARIN [Concomitant]
     Active Substance: ENOXAPARIN
     Dosage: 40 MILLIGRAM DAILY; 0-0-1-0

REACTIONS (4)
  - Product prescribing error [Unknown]
  - Bone pain [Unknown]
  - Nausea [Unknown]
  - Vomiting [Unknown]
